FAERS Safety Report 24048432 (Version 2)
Quarter: 2024Q3

REPORT INFORMATION
  Report Type: Spontaneous
  Country: JP (occurrence: JP)
  Receive Date: 20240704
  Receipt Date: 20240807
  Transmission Date: 20241017
  Serious: Yes (Other)
  Sender: NOVARTIS
  Company Number: JP-002147023-NVSJ2024JP007753

PATIENT

DRUGS (1)
  1. BEOVU [Suspect]
     Active Substance: BROLUCIZUMAB-DBLL
     Indication: Age-related macular degeneration
     Dosage: UNK
     Route: 031

REACTIONS (3)
  - Uveitic glaucoma [Recovered/Resolved]
  - Intraocular pressure increased [Recovered/Resolved]
  - Uveitis [Recovered/Resolved]
